FAERS Safety Report 9645314 (Version 2)
Quarter: 2013Q4

REPORT INFORMATION
  Report Type: Report from Study
  Country: US (occurrence: US)
  Receive Date: 20131025
  Receipt Date: 20131107
  Transmission Date: 20140711
  Serious: Yes (Other)
  Sender: FDA-Public Use
  Company Number: US-BAYER-2013-129767

PATIENT
  Age: 35 Year
  Sex: Female

DRUGS (1)
  1. MIRENA [Suspect]
     Indication: CONTRACEPTION
     Dosage: 20 MCG/24HR, CONT
     Route: 015
     Dates: start: 20121106

REACTIONS (6)
  - Vaginal haemorrhage [Not Recovered/Not Resolved]
  - Device breakage [None]
  - Pain [Not Recovered/Not Resolved]
  - Medical device discomfort [None]
  - Device expulsion [Not Recovered/Not Resolved]
  - Device issue [None]
